FAERS Safety Report 21265002 (Version 1)
Quarter: 2022Q3

REPORT INFORMATION
  Report Type: Spontaneous
  Country: US (occurrence: None)
  Receive Date: 20220826
  Receipt Date: 20220826
  Transmission Date: 20221027
  Serious: No
  Sender: FDA-Public Use
  Company Number: None

PATIENT
  Sex: 0

DRUGS (2)
  1. TECENTRIQ [Suspect]
     Active Substance: ATEZOLIZUMAB
  2. AVASTIN [Suspect]
     Active Substance: BEVACIZUMAB

REACTIONS (2)
  - Platelet count decreased [None]
  - Haemoglobin decreased [None]
